FAERS Safety Report 7856832 (Version 6)
Quarter: 2013Q3

REPORT INFORMATION
  Report Type: Report from Study
  Country: CA (occurrence: CA)
  Receive Date: 20110315
  Receipt Date: 20130816
  Transmission Date: 20140515
  Serious: Yes (Death, Hospitalization, Other)
  Sender: FDA-Public Use
  Company Number: PHHY2011CA18345

PATIENT
  Age: 68 Year
  Sex: Female

DRUGS (14)
  1. EXJADE [Suspect]
     Indication: APLASTIC ANAEMIA
     Dosage: 1650 MG, QD
     Route: 048
     Dates: start: 200910, end: 201104
  2. EXJADE [Suspect]
     Dosage: 1650 MG, QD
     Route: 048
  3. EXJADE [Suspect]
     Dosage: 1000 MG, QD
     Route: 048
  4. DESFERAL [Suspect]
     Route: 042
  5. METOPROLOL [Concomitant]
     Dosage: 12.5 MG, BID
     Route: 048
  6. THYROXINE [Concomitant]
     Dosage: 150 MG, QD
     Route: 048
  7. ELTROXIN [Concomitant]
     Dosage: 0.15 MG, QD
     Route: 048
  8. ACTONEL [Concomitant]
     Dosage: 35 MG, UNK
     Route: 048
  9. VENTOLIN [Concomitant]
     Dosage: UNK UKN, UNK
  10. ATROVENT [Concomitant]
     Dosage: UNK UKN, UNK
  11. MAGNESIUM OXIDE [Concomitant]
     Dosage: UNK UKN, UNK
  12. CALCIUM [Concomitant]
     Dosage: UNK UKN, UNK
  13. VITAMIN D [Concomitant]
     Dosage: UNK UKN, UNK
  14. PLATELETS, HUMAN BLOOD [Concomitant]
     Dosage: UNK UKN, UNK

REACTIONS (6)
  - Death [Fatal]
  - Sepsis [Unknown]
  - Visual impairment [Unknown]
  - Diarrhoea [Unknown]
  - Abdominal discomfort [Unknown]
  - Serum ferritin increased [Unknown]
